FAERS Safety Report 9144501 (Version 1)
Quarter: 2013Q1

REPORT INFORMATION
  Report Type: Spontaneous
  Country: DE (occurrence: DE)
  Receive Date: 20130306
  Receipt Date: 20130306
  Transmission Date: 20140127
  Serious: Yes (Other)
  Sender: FDA-Public Use
  Company Number: DE-TEVA-387892GER

PATIENT
  Age: 0 Year
  Sex: Male

DRUGS (2)
  1. ATENOLOL [Suspect]
     Route: 064
  2. GYNVITAL GRAVIDA [Concomitant]
     Route: 064

REACTIONS (4)
  - Hypoglycaemia neonatal [Recovered/Resolved]
  - Bradycardia neonatal [Recovered/Resolved]
  - Hydrocele [Unknown]
  - Small for dates baby [Recovered/Resolved]
